FAERS Safety Report 9520627 (Version 1)
Quarter: 2013Q3

REPORT INFORMATION
  Report Type: Spontaneous
  Country: US (occurrence: US)
  Receive Date: 20130913
  Receipt Date: 20130913
  Transmission Date: 20140515
  Serious: Yes (Death)
  Sender: FDA-Public Use
  Company Number: US-AMGEN-USASP2013063760

PATIENT
  Age: 89 Year
  Sex: Male

DRUGS (2)
  1. PROLIA [Suspect]
     Indication: SENILE OSTEOPOROSIS
     Dosage: UNK
     Route: 065
  2. CORTICOSTEROIDS [Concomitant]

REACTIONS (1)
  - Death [Fatal]
